FAERS Safety Report 4718938-4 (Version None)
Quarter: 2005Q3

REPORT INFORMATION
  Report Type: 
  Country: None (occurrence: None)
  Receive Date: 20050719
  Receipt Date: 20050630
  Transmission Date: 20060218
  Serious: Yes (Hospitalization)
  Sender: FDA-Public Use
  Company Number: FR_050606624

PATIENT
  Age: 74 Year
  Sex: Male
  Weight: 65 kg

DRUGS (10)
  1. PROZAC [Suspect]
     Dosage: 20 MG/1 DAY
     Dates: start: 20050518, end: 20050523
  2. AUGMENTIN '125' [Concomitant]
  3. NEXIUM [Concomitant]
  4. LASIX [Concomitant]
  5. FLUCONAZOLE [Concomitant]
  6. HEPARIN [Concomitant]
  7. CORDARONE [Concomitant]
  8. ACTRAPID (INSULIN HUMAN) [Concomitant]
  9. CETORNAN (ORNITHINE OXOGLURATE) [Concomitant]
  10. PROPOFOL [Concomitant]

REACTIONS (2)
  - LEUKOPENIA [None]
  - NEUTROPENIA [None]
